FAERS Safety Report 20592911 (Version 1)
Quarter: 2022Q1

REPORT INFORMATION
  Report Type: Spontaneous
  Country: ES (occurrence: ES)
  Receive Date: 20220315
  Receipt Date: 20220315
  Transmission Date: 20220423
  Serious: Yes (Hospitalization, Other)
  Sender: FDA-Public Use
  Company Number: ES-EMA-DD-20190306-kumarsingh_a-164344

PATIENT
  Age: 69 Year
  Sex: Male

DRUGS (6)
  1. ENALAPRIL [Interacting]
     Active Substance: ENALAPRIL
     Indication: Hypertension
     Dosage: 5 MILLIGRAM, DAILY
     Route: 048
     Dates: start: 2009
  2. FUROSEMIDE [Interacting]
     Active Substance: FUROSEMIDE
     Indication: Product used for unknown indication
     Dosage: 40 MILLIGRAM, DAILY
     Route: 048
     Dates: start: 201608, end: 20160923
  3. HYDROCHLOROTHIAZIDE [Interacting]
     Active Substance: HYDROCHLOROTHIAZIDE
     Indication: Hypertension
     Dosage: 50 MILLIGRAM, DAILY
     Route: 048
     Dates: start: 201310, end: 20160923
  4. SERTRALINE [Interacting]
     Active Substance: SERTRALINE HYDROCHLORIDE
     Indication: Product used for unknown indication
     Dosage: 200 MILLIGRAM, DAILY
     Route: 048
     Dates: start: 201408, end: 20160923
  5. ROSUVASTATIN [Concomitant]
     Active Substance: ROSUVASTATIN
     Indication: Hyperlipidaemia
     Dosage: 20 MILLIGRAM, DAILY
     Route: 048
     Dates: start: 2016, end: 20160923
  6. ELIQUIS [Concomitant]
     Active Substance: APIXABAN
     Indication: Hyperlipidaemia
     Dosage: 5 MILLIGRAM, DAILY
     Route: 048
     Dates: start: 2016, end: 20160923

REACTIONS (1)
  - Hyponatraemia [Recovered/Resolved]

NARRATIVE: CASE EVENT DATE: 20160923
